FAERS Safety Report 4587123-1 (Version None)
Quarter: 2005Q1

REPORT INFORMATION
  Report Type: 
  Country: None (occurrence: None)
  Receive Date: 20050218
  Receipt Date: 20050203
  Transmission Date: 20050727
  Serious: Yes (Hospitalization)
  Sender: FDA-Public Use
  Company Number: US-GLAXOSMITHKLINE-A0543685A

PATIENT
  Age: 76 Year
  Sex: Female
  Weight: 71 kg

DRUGS (1)
  1. AQUAFRESH FLUORIDE PROTECTION TOOTHPASTE TUBE [Suspect]
     Indication: DENTAL CARE
     Dates: start: 20030101

REACTIONS (3)
  - DERMATITIS [None]
  - ECZEMA [None]
  - GASTRITIS [None]
